FAERS Safety Report 8376102-4 (Version None)
Quarter: 2012Q2

REPORT INFORMATION
  Report Type: 
  Country: None (occurrence: None)
  Receive Date: 20120522
  Receipt Date: 20120515
  Transmission Date: 20120825
  Serious: Yes (Life-Threatening, Hospitalization)
  Sender: FDA-Public Use
  Company Number: US-BAYER-2011-094225

PATIENT
  Age: 36 Year
  Sex: Female
  Weight: 136.51 kg

DRUGS (4)
  1. LANTUS [Concomitant]
     Indication: DIABETES MELLITUS
     Dosage: UNK
     Dates: start: 20080901, end: 20091001
  2. YAZ [Suspect]
     Indication: HORMONE LEVEL ABNORMAL
     Dosage: UNK
     Dates: start: 20080901, end: 20081112
  3. METFORMIN HCL [Concomitant]
     Indication: DIABETES MELLITUS
     Dosage: UNK
     Dates: start: 20070101
  4. GLUCOTROL [Concomitant]
     Indication: DIABETES MELLITUS
     Dosage: UNK
     Dates: start: 19980101, end: 20090601

REACTIONS (11)
  - PAIN [None]
  - PULMONARY EMBOLISM [None]
  - CHEST PAIN [None]
  - ANXIETY [None]
  - DYSPNOEA [None]
  - EMOTIONAL DISTRESS [None]
  - PAIN IN EXTREMITY [None]
  - ASTHENIA [None]
  - HAEMOPTYSIS [None]
  - GENERAL PHYSICAL HEALTH DETERIORATION [None]
  - INJURY [None]
